FAERS Safety Report 12834609 (Version 1)
Quarter: 2016Q4

REPORT INFORMATION
  Report Type: Spontaneous
  Country: IT (occurrence: IT)
  Receive Date: 20161010
  Receipt Date: 20161010
  Transmission Date: 20170207
  Serious: Yes (Life-Threatening)
  Sender: FDA-Public Use
  Company Number: IT-PFIZER INC-2016468746

PATIENT
  Age: 52 Year
  Sex: Male
  Weight: 70 kg

DRUGS (5)
  1. VANCOMICINA HIKMA [Suspect]
     Active Substance: VANCOMYCIN HYDROCHLORIDE
     Dosage: 2 G, DAILY
     Route: 042
     Dates: start: 20160914, end: 20160922
  2. LYRICA [Suspect]
     Active Substance: PREGABALIN
     Dosage: 75 MG, CYCLIC
     Route: 048
     Dates: start: 20160917, end: 20160922
  3. SPIDIDOL [Interacting]
     Active Substance: IBUPROFEN
     Indication: CHEST PAIN
     Dosage: 400 MG, CYCLIC
     Route: 048
     Dates: start: 20160916, end: 20160922
  4. PREDNISONE. [Concomitant]
     Active Substance: PREDNISONE
     Dosage: 5 MG, UNK
     Route: 048
     Dates: start: 20160915, end: 20160922
  5. PIPERACILLIN AND TAZOBACTAM [Concomitant]
     Active Substance: PIPERACILLIN SODIUM\TAZOBACTAM SODIUM
     Dosage: 4.5 G, UNK
     Route: 042
     Dates: start: 20160914, end: 20160922

REACTIONS (2)
  - Drug interaction [Recovering/Resolving]
  - Hepatitis fulminant [Recovering/Resolving]

NARRATIVE: CASE EVENT DATE: 20160922
